FAERS Safety Report 9181670 (Version 1)
Quarter: 2013Q1

REPORT INFORMATION
  Report Type: Spontaneous
  Country: US (occurrence: US)
  Receive Date: 20130322
  Receipt Date: 20130322
  Transmission Date: 20140127
  Serious: No
  Sender: FDA-Public Use
  Company Number: US-JNJFOC-20130305873

PATIENT
  Sex: Female
  Weight: 98.43 kg

DRUGS (26)
  1. DURAGESIC [Suspect]
     Indication: NECK INJURY
     Route: 062
     Dates: start: 201302
  2. DURAGESIC [Suspect]
     Indication: NECK INJURY
     Route: 062
     Dates: start: 2012, end: 2013
  3. DURAGESIC [Suspect]
     Indication: BACK INJURY
     Route: 062
     Dates: start: 201302
  4. DURAGESIC [Suspect]
     Indication: BACK INJURY
     Route: 062
     Dates: start: 2012, end: 2013
  5. NEXIUM [Concomitant]
     Indication: GASTROOESOPHAGEAL REFLUX DISEASE
     Route: 048
     Dates: start: 2010
  6. ESTRADIOL [Concomitant]
     Indication: MENOPAUSE
     Route: 048
     Dates: start: 201009
  7. WELLBUTRIN [Concomitant]
     Indication: ANXIETY
     Route: 048
  8. WELLBUTRIN [Concomitant]
     Indication: DEPRESSION
     Route: 048
  9. FLEXERIL [Concomitant]
     Indication: PARKINSON^S DISEASE
     Route: 048
     Dates: start: 2007
  10. BACLOFEN [Concomitant]
     Indication: MUSCLE SPASMS
     Route: 048
     Dates: start: 2013
  11. METFORMIN [Concomitant]
     Indication: DIABETES MELLITUS
     Route: 048
     Dates: start: 201108
  12. NORCO [Concomitant]
     Indication: PAIN
     Route: 048
     Dates: start: 2007
  13. MIRAPEX [Concomitant]
     Indication: RESTLESS LEGS SYNDROME
     Route: 048
     Dates: start: 2007
  14. MIRAPEX [Concomitant]
     Indication: PARKINSON^S DISEASE
     Route: 048
     Dates: start: 2007
  15. VITAMIN D3 [Concomitant]
     Indication: MEDICAL DIET
     Dosage: 1000 UNITS
     Route: 048
     Dates: start: 2006
  16. OMEGA FISH OILS [Concomitant]
     Indication: MEDICAL DIET
     Dosage: 300/1000MG/TABLET
     Route: 048
  17. PROVENTIL [Concomitant]
     Indication: CHRONIC OBSTRUCTIVE PULMONARY DISEASE
     Route: 055
     Dates: start: 2010
  18. LISINOPRIL [Concomitant]
     Indication: DIURETIC THERAPY
     Route: 048
  19. LOVASTIN [Concomitant]
     Indication: BLOOD CHOLESTEROL
     Route: 048
     Dates: start: 201010
  20. CELEBREX [Concomitant]
     Indication: DEPRESSION
     Route: 048
     Dates: start: 2010
  21. TRAZODONE [Concomitant]
     Route: 048
  22. DETROL LA [Concomitant]
     Indication: INCONTINENCE
     Route: 048
     Dates: start: 2004
  23. ALPRAZOLAM [Concomitant]
     Indication: SLEEP DISORDER
     Route: 048
     Dates: start: 201009
  24. PRISTIQ [Concomitant]
     Indication: DEPRESSION
     Route: 048
  25. ASPIRIN [Concomitant]
     Indication: HYPERTENSION
     Route: 048
     Dates: start: 2010
  26. CYCLOBENZAPRINE [Concomitant]
     Indication: MUSCLE SPASMS
     Route: 048
     Dates: end: 2013

REACTIONS (7)
  - Abnormal behaviour [Recovered/Resolved]
  - Withdrawal syndrome [Recovered/Resolved]
  - Pain [Recovered/Resolved]
  - Oral candidiasis [Not Recovered/Not Resolved]
  - Drug dose omission [Recovered/Resolved]
  - Product quality issue [Unknown]
  - Fatigue [Unknown]
